FAERS Safety Report 24816769 (Version 2)
Quarter: 2025Q1

REPORT INFORMATION
  Report Type: Report from Study
  Country: DE (occurrence: DE)
  Receive Date: 20250107
  Receipt Date: 20250202
  Transmission Date: 20250408
  Serious: Yes (Hospitalization, Other)
  Sender: ABBVIE
  Company Number: DE-ABBVIE-6073343

PATIENT
  Sex: Male

DRUGS (1)
  1. SKYRIZI [Suspect]
     Active Substance: RISANKIZUMAB-RZAA
     Indication: Psoriasis
     Route: 058
     Dates: start: 20230509

REACTIONS (1)
  - Osteoarthritis [Recovered/Resolved with Sequelae]
